FAERS Safety Report 5199684-2 (Version None)
Quarter: 2007Q1

REPORT INFORMATION
  Report Type: 
  Country: None (occurrence: None)
  Receive Date: 20070105
  Receipt Date: 20061227
  Transmission Date: 20070707
  Serious: Yes (Hospitalization)
  Sender: FDA-Public Use
  Company Number: FR-JNJFOC-20061004672

PATIENT
  Sex: Male

DRUGS (9)
  1. REMINYL [Suspect]
     Route: 048
  2. REMINYL [Suspect]
     Indication: DEMENTIA ALZHEIMER'S TYPE
     Route: 048
  3. GLUCOPHAGE [Concomitant]
  4. GLIMEPIRIDE [Concomitant]
  5. CRESTOR [Concomitant]
  6. NOOTROPYL [Concomitant]
  7. FLECAINIDE ACETATE [Concomitant]
  8. PERMIXON [Concomitant]
  9. NICARDIPINE HCL [Concomitant]

REACTIONS (2)
  - ATRIOVENTRICULAR BLOCK [None]
  - BRADYCARDIA [None]
